FAERS Safety Report 4555875-2 (Version None)
Quarter: 2005Q1

REPORT INFORMATION
  Report Type: 
  Country: None (occurrence: None)
  Receive Date: 20050119
  Receipt Date: 20030401
  Transmission Date: 20050727
  Serious: Yes (Hospitalization)
  Sender: FDA-Public Use
  Company Number: BE-ROCHE-334926

PATIENT
  Age: 65 Year
  Sex: Male

DRUGS (8)
  1. CAPECITABINE [Suspect]
     Route: 048
     Dates: start: 20030226, end: 20030311
  2. RAF KINASE INHIBITOR [Suspect]
     Route: 048
     Dates: start: 20030226, end: 20030318
  3. PYRIDOXINE HCL [Concomitant]
     Route: 048
  4. RANITIDINE [Concomitant]
     Dosage: TRADE NAME DOCRANITI
     Route: 048
  5. SPIRONOLACTONE [Concomitant]
     Route: 048
  6. FELDENE [Concomitant]
  7. LACTEOL [Concomitant]
  8. LYSANXIA [Concomitant]

REACTIONS (5)
  - DIFFICULTY IN WALKING [None]
  - DISEASE PROGRESSION [None]
  - DYSPNOEA [None]
  - GAIT DISTURBANCE [None]
  - HYPERVENTILATION [None]
